FAERS Safety Report 24242938 (Version 1)
Quarter: 2024Q3

REPORT INFORMATION
  Report Type: Spontaneous
  Country: RO (occurrence: RO)
  Receive Date: 20240823
  Receipt Date: 20240823
  Transmission Date: 20241017
  Serious: Yes (Disabling, Other)
  Sender: RANBAXY
  Company Number: RO-NMA-2024-SP0408

PATIENT
  Age: 30 Year
  Sex: Female
  Weight: 56 kg

DRUGS (4)
  1. SERTRALINE HYDROCHLORIDE [Suspect]
     Active Substance: SERTRALINE HYDROCHLORIDE
     Indication: Depression
     Dosage: 25MG EACH ONCE A DAY FOR 7 DAYS, THEN 50MG ONCE A DAY
     Route: 048
     Dates: start: 20240301, end: 20240307
  2. SYMBICORT [Concomitant]
     Active Substance: BUDESONIDE\FORMOTEROL FUMARATE DIHYDRATE
     Indication: Asthma
     Dosage: 1 DOSAGE FORM, QOD
     Route: 055
     Dates: start: 201403
  3. CARBAMAZEPINE [Concomitant]
     Active Substance: CARBAMAZEPINE
     Indication: Migraine prophylaxis
     Dosage: 200 MILLIGRAM, DAILY
     Route: 048
     Dates: start: 202311
  4. NATALIZUMABUM [Concomitant]
     Indication: Multiple sclerosis
     Dosage: 300 MILLIGRAM, MONTHLY
     Route: 040
     Dates: start: 20170701

REACTIONS (2)
  - Migraine [Recovered/Resolved]
  - Tension headache [Recovered/Resolved]

NARRATIVE: CASE EVENT DATE: 20240301
